FAERS Safety Report 5197966-1 (Version None)
Quarter: 2007Q1

REPORT INFORMATION
  Report Type: 
  Country: None (occurrence: None)
  Receive Date: 20070104
  Receipt Date: 20061222
  Transmission Date: 20070707
  Serious: Yes (Other)
  Sender: FDA-Public Use
  Company Number: PHFR2006GB03736

PATIENT
  Sex: Female

DRUGS (3)
  1. DICLOFENAC SODIUM [Suspect]
     Route: 065
  2. PLAVIX [Suspect]
     Dosage: 75MG
     Route: 048
  3. ACETYLSALICYLIC ACID SRT [Concomitant]
     Route: 065

REACTIONS (1)
  - PERICARDIAL HAEMORRHAGE [None]
